FAERS Safety Report 13641784 (Version 1)
Quarter: 2017Q2

REPORT INFORMATION
  Report Type: Spontaneous
  Country: MX (occurrence: MX)
  Receive Date: 20170612
  Receipt Date: 20170612
  Transmission Date: 20170830
  Serious: Yes (Other)
  Sender: FDA-Public Use
  Company Number: PHHY2017MX083825

PATIENT
  Sex: Female

DRUGS (4)
  1. PALBOCICLIB [Concomitant]
     Active Substance: PALBOCICLIB
     Indication: BREAST CANCER METASTATIC
  2. LETROZOLE. [Suspect]
     Active Substance: LETROZOLE
     Indication: BREAST CANCER METASTATIC
  3. LETROZOLE. [Suspect]
     Active Substance: LETROZOLE
     Indication: HER-2 POSITIVE BREAST CANCER
     Route: 065
  4. PALBOCICLIB [Concomitant]
     Active Substance: PALBOCICLIB
     Indication: HER-2 POSITIVE BREAST CANCER
     Route: 065

REACTIONS (2)
  - Thrombocytopenia [Unknown]
  - Neutropenia [Unknown]
